FAERS Safety Report 16799569 (Version 2)
Quarter: 2020Q4

REPORT INFORMATION
  Report Type: Spontaneous
  Country: GB (occurrence: GB)
  Receive Date: 20190912
  Receipt Date: 20201021
  Transmission Date: 20210113
  Serious: Yes (Other)
  Sender: FDA-Public Use
  Company Number: GB-AMGEN-GBRSP2019139946

PATIENT
  Age: 72 Year
  Sex: Female

DRUGS (8)
  1. PROLIA [Suspect]
     Active Substance: DENOSUMAB
     Dosage: 60 MILLIGRAM, Q6MO
     Route: 058
     Dates: end: 20190307
  2. ADCAL D3 [Concomitant]
     Active Substance: CALCIUM CARBONATE\CHOLECALCIFEROL
     Dosage: UNK UNK, BID
  3. SYMBICORT [Concomitant]
     Active Substance: BUDESONIDE\FORMOTEROL FUMARATE DIHYDRATE
     Dosage: 400/12 ONE PUFF, BID
  4. VENTOLINE [SALBUTAMOL] [Concomitant]
     Active Substance: ALBUTEROL SULFATE
     Dosage: UNK UNK, AS NECESSARY
  5. PROLIA [Suspect]
     Active Substance: DENOSUMAB
     Indication: OSTEOPOROSIS POSTMENOPAUSAL
     Dosage: 60 MILLIGRAM, Q6MO
     Route: 058
     Dates: start: 20180130, end: 20180719
  6. GBO DM [Concomitant]
     Dosage: 0-2 PERCENT, TID
  7. SPIRIVA [Concomitant]
     Active Substance: TIOTROPIUM BROMIDE MONOHYDRATE
     Dosage: 18 MICROGRAM, QD
  8. TRAMADOL. [Concomitant]
     Active Substance: TRAMADOL
     Dosage: 50 GRAM

REACTIONS (12)
  - Muscle spasms [Recovered/Resolved]
  - Headache [Recovering/Resolving]
  - Bone pain [Recovered/Resolved]
  - Paraesthesia [Recovered/Resolved]
  - Deafness [Recovering/Resolving]
  - Nausea [Recovering/Resolving]
  - Pain in jaw [Recovered/Resolved]
  - Dysphagia [Recovered/Resolved]
  - Gingival pain [Recovered/Resolved]
  - Pruritus [Recovered/Resolved]
  - Rash [Recovered/Resolved]
  - Arthralgia [Recovering/Resolving]

NARRATIVE: CASE EVENT DATE: 20180130
